FAERS Safety Report 15423971 (Version 5)
Quarter: 2018Q4

REPORT INFORMATION
  Report Type: Spontaneous
  Country: FR (occurrence: FR)
  Receive Date: 20180925
  Receipt Date: 20181205
  Transmission Date: 20190204
  Serious: Yes (Other)
  Sender: FDA-Public Use
  Company Number: FR-AUROBINDO-AUR-APL-2018-047813

PATIENT

DRUGS (40)
  1. NICARDIPINE [Suspect]
     Active Substance: NICARDIPINE
     Indication: PRODUCT USED FOR UNKNOWN INDICATION
     Dosage: 50 MILLIGRAM
     Route: 064
     Dates: start: 20170405
  2. FERROUS SULFATE. [Suspect]
     Active Substance: FERROUS SULFATE
     Indication: PRODUCT USED FOR UNKNOWN INDICATION
     Dosage: 1 DF, QD
     Route: 064
  3. METHYLDOPA. [Suspect]
     Active Substance: METHYLDOPA
     Indication: HYPERTENSION
     Dosage: 1500 MG, QD
     Route: 064
     Dates: start: 20170720
  4. TRAMADOL. [Suspect]
     Active Substance: TRAMADOL
     Indication: DIABETIC NEUROPATHY
     Dosage: 50 MG, QD
     Route: 064
     Dates: start: 20160930, end: 20170306
  5. AMOXICILLIN. [Suspect]
     Active Substance: AMOXICILLIN
     Dosage: 1 UNK
     Route: 064
     Dates: start: 201708, end: 20180811
  6. LANTUS [Suspect]
     Active Substance: INSULIN GLARGINE
     Dosage: UNK
  7. DIFFU-K [Suspect]
     Active Substance: POTASSIUM CHLORIDE
     Dosage: 3600 MILLIGRAM, ONCE A DAY
     Route: 064
     Dates: start: 20170804
  8. HUMALOG [Suspect]
     Active Substance: INSULIN LISPRO
     Dosage: 21 MICROGRAM/SQ. METER, ONCE A DAY
     Route: 064
     Dates: start: 20170224
  9. LOXEN L P [Suspect]
     Active Substance: NICARDIPINE HYDROCHLORIDE
     Indication: HYPERTENSION
     Dosage: 50 MILLIGRAM
     Route: 064
     Dates: start: 20170405
  10. LOXEN L P [Suspect]
     Active Substance: NICARDIPINE HYDROCHLORIDE
     Dosage: 50 MILLIGRAM,UNK
  11. METFORMIN [Suspect]
     Active Substance: METFORMIN HYDROCHLORIDE
     Dosage: 1700 MG, QD/ 850 MG DAILY
     Route: 064
     Dates: start: 20160930, end: 20170224
  12. FOLINIC ACID [Suspect]
     Active Substance: LEUCOVORIN
     Indication: PRODUCT USED FOR UNKNOWN INDICATION
     Dosage: 5 MG, QD
     Route: 065
     Dates: start: 20170224, end: 20170313
  13. FORLAX [Suspect]
     Active Substance: POLYETHYLENE GLYCOL 4000
     Dosage: 1 DOSAGE FORM
     Route: 064
     Dates: start: 20160930, end: 20170224
  14. LAROXYL [Suspect]
     Active Substance: AMITRIPTYLINE HYDROCHLORIDE
     Indication: PRODUCT USED FOR UNKNOWN INDICATION
     Dosage: 2 DF, QD
     Route: 064
     Dates: start: 20160930
  15. DIFFU-K [Suspect]
     Active Substance: POTASSIUM CHLORIDE
     Indication: PRODUCT USED FOR UNKNOWN INDICATION
     Dosage: 1200 MG, UNK
     Route: 064
     Dates: start: 20170804
  16. LARGACTIL                          /00011901/ [Suspect]
     Active Substance: CHLORPROMAZINE
     Dosage: 25 MG, QD
     Route: 064
  17. GABAPENTIN. [Suspect]
     Active Substance: GABAPENTIN
     Dosage: 800 MG, QD
     Route: 064
     Dates: start: 20160930
  18. FOLIC ACID TABLET [Suspect]
     Active Substance: FOLIC ACID
     Indication: NORMOCHROMIC NORMOCYTIC ANAEMIA
     Dosage: 5 MG, QD
     Route: 064
     Dates: start: 20170224, end: 20170313
  19. AMOXICILLIN. [Suspect]
     Active Substance: AMOXICILLIN
     Indication: PRODUCT USED FOR UNKNOWN INDICATION
     Dosage: 3 G, QD
     Route: 064
     Dates: start: 20170804, end: 20170811
  20. METFORMIN [Suspect]
     Active Substance: METFORMIN HYDROCHLORIDE
     Dosage: 850 MG, QD
     Route: 064
     Dates: start: 20170224
  21. RAMIPRIL. [Suspect]
     Active Substance: RAMIPRIL
     Indication: HYPERTENSION
     Dosage: 2.5 MG, QD
     Route: 064
     Dates: start: 20160930, end: 20170224
  22. FERROUS SULFATE. [Suspect]
     Active Substance: FERROUS SULFATE
     Dosage: 1 DF, QD
     Route: 064
     Dates: start: 20170313
  23. LABETALOL [Suspect]
     Active Substance: LABETALOL\LABETALOL HYDROCHLORIDE
     Indication: HYPERTENSION
     Dosage: 80 MG, QD
     Route: 064
  24. LABETALOL [Suspect]
     Active Substance: LABETALOL\LABETALOL HYDROCHLORIDE
     Dosage: 80 MG, QD
     Route: 064
     Dates: start: 20170516
  25. HUMALOG [Suspect]
     Active Substance: INSULIN LISPRO
     Indication: PRODUCT USED FOR UNKNOWN INDICATION
     Dosage: 21 MILLIGRAM, ONCE A DAY
     Route: 064
     Dates: start: 20170224
  26. GABAPENTIN. [Suspect]
     Active Substance: GABAPENTIN
     Indication: DIABETIC NEUROPATHY
     Dosage: 400 MG, QD
     Route: 064
     Dates: start: 20160930
  27. FOLIC ACID TABLET [Suspect]
     Active Substance: FOLIC ACID
     Dosage: 5 UNK
     Route: 064
     Dates: start: 20170313
  28. LEVEMIR [Suspect]
     Active Substance: INSULIN DETEMIR
     Indication: TYPE 2 DIABETES MELLITUS
     Dosage: 10 IU, QD
     Route: 064
     Dates: start: 20160930, end: 20170224
  29. FORLAX [Suspect]
     Active Substance: POLYETHYLENE GLYCOL 4000
     Indication: CONSTIPATION
     Dosage: 1 DOSAGE FORM, ONCE A DAY
     Route: 064
     Dates: start: 20160930, end: 20170405
  30. LASIX [Suspect]
     Active Substance: FUROSEMIDE
     Indication: PRODUCT USED FOR UNKNOWN INDICATION
     Dosage: 40 MG, UNK
     Route: 064
  31. LOXEN L P [Suspect]
     Active Substance: NICARDIPINE HYDROCHLORIDE
     Dosage: 1 DF, UNK
     Route: 064
     Dates: start: 20170313, end: 20180405
  32. NICOPATCH [Suspect]
     Active Substance: NICOTINE
     Indication: PRODUCT USED FOR UNKNOWN INDICATION
     Dosage: 7 MG, QD
     Route: 064
     Dates: start: 20170224, end: 20170516
  33. FUROSEMIDE. [Suspect]
     Active Substance: FUROSEMIDE
     Indication: HYPERTENSION
     Dosage: UNK
     Route: 064
     Dates: start: 20170516
  34. LANTUS [Suspect]
     Active Substance: INSULIN GLARGINE
     Indication: TYPE 2 DIABETES MELLITUS
     Dosage: 20 MG, QD
     Route: 064
     Dates: start: 20170224
  35. ARIPIPRAZOLE. [Suspect]
     Active Substance: ARIPIPRAZOLE
     Indication: PRODUCT USED FOR UNKNOWN INDICATION
     Dosage: 10 MG, QD
     Route: 064
     Dates: start: 20160930, end: 20170224
  36. GLICLAZIDE [Suspect]
     Active Substance: GLICLAZIDE
     Indication: TYPE 2 DIABETES MELLITUS
     Dosage: 120 MG, QD
     Route: 064
     Dates: start: 20160930, end: 20170224
  37. FOLIC ACID TABLET [Suspect]
     Active Substance: FOLIC ACID
     Dosage: 5 MG, QD
     Route: 064
     Dates: start: 20170224
  38. METFORMIN [Suspect]
     Active Substance: METFORMIN HYDROCHLORIDE
     Indication: PRODUCT USED FOR UNKNOWN INDICATION
     Dosage: 1700 MG, QD/ 850 MG DAILY
     Route: 064
     Dates: start: 20170804
  39. LANTUS [Suspect]
     Active Substance: INSULIN GLARGINE
     Dosage: 20 INTERNATIONAL UNIT
     Route: 064
     Dates: start: 20170224
  40. LARGACTIL                          /00011901/ [Suspect]
     Active Substance: CHLORPROMAZINE
     Indication: BIPOLAR I DISORDER
     Dosage: 25 MILLIGRAM, ONCE A DAY
     Route: 064
     Dates: start: 20170720

REACTIONS (5)
  - Foetal exposure during pregnancy [Unknown]
  - Low birth weight baby [Unknown]
  - Neutropenia neonatal [Not Recovered/Not Resolved]
  - Premature baby [Unknown]
  - Foetal disorder [Unknown]

NARRATIVE: CASE EVENT DATE: 20170914
